FAERS Safety Report 18194899 (Version 1)
Quarter: 2020Q3

REPORT INFORMATION
  Report Type: Spontaneous
  Country: CA (occurrence: CA)
  Receive Date: 20200825
  Receipt Date: 20200825
  Transmission Date: 20201103
  Serious: Yes (Life-Threatening, Other)
  Sender: FDA-Public Use
  Company Number: CA-GLAXOSMITHKLINE-CA2020AMR167364

PATIENT
  Age: 57 Year
  Sex: Male

DRUGS (2)
  1. LAMOTRIGINE. [Suspect]
     Active Substance: LAMOTRIGINE
     Indication: SEIZURE
     Dosage: 150 MG, BID
     Route: 048
  2. VALPROIC ACID. [Suspect]
     Active Substance: VALPROIC ACID
     Indication: SEIZURE
     Dosage: 500 MG, TID
     Route: 048

REACTIONS (4)
  - Depressed level of consciousness [Recovered/Resolved]
  - Anticonvulsant drug level increased [Recovered/Resolved]
  - Sedation [Recovered/Resolved]
  - Drug interaction [Recovered/Resolved]
